FAERS Safety Report 9175499 (Version 1)
Quarter: 2013Q1

REPORT INFORMATION
  Report Type: Spontaneous
  Country: US (occurrence: US)
  Receive Date: 20130320
  Receipt Date: 20130320
  Transmission Date: 20140127
  Serious: No
  Sender: FDA-Public Use
  Company Number: US-ASTRAZENECA-2013SE11659

PATIENT
  Age: 53 Year
  Sex: Male
  Weight: 95.3 kg

DRUGS (8)
  1. NEXIUM [Suspect]
     Indication: GASTROOESOPHAGEAL REFLUX DISEASE
     Route: 048
     Dates: end: 20130215
  2. ATENOLOL [Suspect]
     Indication: MIGRAINE
     Route: 048
     Dates: start: 201208
  3. ALTACE [Concomitant]
     Indication: HYPERTENSION
  4. TRICOR [Concomitant]
     Indication: BLOOD CHOLESTEROL INCREASED
  5. LIPITOR [Concomitant]
     Indication: BLOOD CHOLESTEROL INCREASED
  6. SYNTHROID [Concomitant]
     Indication: HYPOTHYROIDISM
  7. COPAXONE [Concomitant]
     Indication: MULTIPLE SCLEROSIS
  8. AMLODIPINE [Concomitant]
     Indication: HYPERTENSION

REACTIONS (4)
  - Dyspepsia [Unknown]
  - Multiple sclerosis [Unknown]
  - Migraine [Unknown]
  - Off label use [Unknown]
